FAERS Safety Report 19577288 (Version 10)
Quarter: 2022Q2

REPORT INFORMATION
  Report Type: Spontaneous
  Country: GB (occurrence: GB)
  Receive Date: 20210719
  Receipt Date: 20220502
  Transmission Date: 20220721
  Serious: Yes (Hospitalization, Other)
  Sender: FDA-Public Use
  Company Number: GB-ROCHE-1621948

PATIENT
  Age: 57 Year
  Sex: Female

DRUGS (114)
  1. CAPECITABINE [Suspect]
     Active Substance: CAPECITABINE
     Indication: Breast cancer
     Route: 048
     Dates: start: 20150901, end: 20160914
  2. CAPECITABINE [Suspect]
     Active Substance: CAPECITABINE
     Dosage: 3300 MG
     Route: 048
     Dates: start: 20160901, end: 20160914
  3. ANASTROZOLE [Suspect]
     Active Substance: ANASTROZOLE
     Indication: Breast cancer
     Dosage: 1 MILLIGRAM, DAILY, 1 MG, QD (1/DAY)
     Route: 048
     Dates: start: 20151021, end: 20171027
  4. ANASTROZOLE [Suspect]
     Active Substance: ANASTROZOLE
     Indication: Breast neoplasm
     Dosage: 1 MG, QD (1/DAY), DATE OF LAST ADMINISTERED DOSE: 27-OCT-2017
     Route: 048
     Dates: start: 20151021, end: 20171027
  5. ANASTROZOLE [Suspect]
     Active Substance: ANASTROZOLE
     Route: 048
  6. ANASTROZOLE [Suspect]
     Active Substance: ANASTROZOLE
     Route: 048
  7. DOCETAXEL [Suspect]
     Active Substance: DOCETAXEL
     Indication: Breast cancer
     Dosage: 130 MILLIGRAM, 1 DOSE/3 WEEKS
     Route: 042
     Dates: start: 20150507, end: 20150903
  8. EXEMESTANE [Suspect]
     Active Substance: EXEMESTANE
     Indication: Breast cancer
     Route: 048
     Dates: start: 20151021
  9. EXEMESTANE [Suspect]
     Active Substance: EXEMESTANE
     Indication: Breast cancer metastatic
     Route: 048
     Dates: start: 20150328
  10. EXEMESTANE [Suspect]
     Active Substance: EXEMESTANE
     Route: 048
     Dates: start: 20090921
  11. EXEMESTANE [Suspect]
     Active Substance: EXEMESTANE
     Route: 048
     Dates: start: 201607, end: 20160921
  12. EXEMESTANE [Suspect]
     Active Substance: EXEMESTANE
     Route: 048
  13. PERJETA [Suspect]
     Active Substance: PERTUZUMAB
     Indication: Breast cancer
     Dosage: 420 MILLIGRAM, 1 DOSE/3 WEEKS, EVERY 3 WEEKS
     Route: 042
     Dates: start: 20150527, end: 20160630
  14. PERJETA [Suspect]
     Active Substance: PERTUZUMAB
     Dosage: 2520 MILLIGRAM, WEEKLY, LOADING DOSE
     Route: 042
     Dates: start: 20150507, end: 20150507
  15. PERJETA [Suspect]
     Active Substance: PERTUZUMAB
     Dosage: LOADING DOSE, DATE OF LAST ADMINISTERED DOSE: 07-MAY-2015
     Route: 042
     Dates: start: 20150507, end: 20150507
  16. PERJETA [Suspect]
     Active Substance: PERTUZUMAB
     Route: 042
     Dates: start: 20160630
  17. PERJETA [Suspect]
     Active Substance: PERTUZUMAB
     Route: 042
     Dates: start: 20160630
  18. HERCEPTIN [Suspect]
     Active Substance: TRASTUZUMAB
     Indication: Breast cancer
     Dosage: 1071 MILLIGRAM, WEEKLY, 357 MG, EVERY 3 WEEKS
     Route: 042
     Dates: start: 20150527, end: 20160630
  19. HERCEPTIN [Suspect]
     Active Substance: TRASTUZUMAB
     Dosage: 462 MILLIGRAM, UNK, LOADING DOSE 3/WEEK (CV)
     Route: 042
     Dates: start: 20150506, end: 20150506
  20. HERCEPTIN [Suspect]
     Active Substance: TRASTUZUMAB
     Dosage: UNK
     Route: 065
  21. HERCEPTIN [Suspect]
     Active Substance: TRASTUZUMAB
     Dosage: 224 MILLIGRAM, UNK EVERY 3 WEEKS
     Route: 042
     Dates: start: 20170620, end: 20170830
  22. HERCEPTIN [Suspect]
     Active Substance: TRASTUZUMAB
     Dosage: 1071 MG, QW (357 MG, EVERY 3 WEEKS, LAST DOSE N 30 JUN 2016)
     Route: 042
     Dates: start: 20150527, end: 20160630
  23. VINORELBINE [Suspect]
     Active Substance: VINORELBINE TARTRATE
     Indication: Breast cancer
     Dosage: 100 MILLIGRAM, QD
     Route: 048
     Dates: start: 20161111
  24. VINORELBINE [Suspect]
     Active Substance: VINORELBINE TARTRATE
     Dosage: 100 MILLIGRAM,QD (FROM 01 SEP 2016)
     Route: 048
     Dates: start: 20160901, end: 20160930
  25. VINORELBINE [Suspect]
     Active Substance: VINORELBINE TARTRATE
     Dosage: 100 MILLIGRAM,QD
     Route: 048
     Dates: start: 20161028, end: 20161028
  26. VINORELBINE [Suspect]
     Active Substance: VINORELBINE TARTRATE
     Route: 048
     Dates: start: 20160901, end: 20161028
  27. TAXOTERE [Suspect]
     Active Substance: DOCETAXEL
     Indication: Breast cancer
     Dosage: 130 MILLIGRAM, UNK, EVERY 3 WEEKS
     Route: 042
     Dates: start: 20150507, end: 20150903
  28. TAXOTERE [Suspect]
     Active Substance: DOCETAXEL
     Dosage: 130 MG, Q3W
     Route: 042
     Dates: start: 20150903
  29. TAXOTERE [Suspect]
     Active Substance: DOCETAXEL
     Route: 042
     Dates: start: 20161111
  30. TAXOTERE [Suspect]
     Active Substance: DOCETAXEL
     Route: 042
  31. TAXOTERE [Suspect]
     Active Substance: DOCETAXEL
     Dosage: 1 OT, QW (20 JUN 2017)
     Route: 042
     Dates: start: 20170830
  32. XELODA [Suspect]
     Active Substance: CAPECITABINE
     Indication: Breast cancer
     Dosage: 3300 MG (FROM 01 SEP 2016)
     Route: 048
     Dates: start: 20160901, end: 20160914
  33. ADO-TRASTUZUMAB EMTANSINE [Suspect]
     Active Substance: ADO-TRASTUZUMAB EMTANSINE
     Indication: Breast cancer
     Dosage: LOADING DOSE
     Route: 042
     Dates: start: 20150506, end: 20150506
  34. ADO-TRASTUZUMAB EMTANSINE [Suspect]
     Active Substance: ADO-TRASTUZUMAB EMTANSINE
     Dosage: 357 MG, Q3W
     Route: 042
     Dates: start: 20170620, end: 20170830
  35. ADO-TRASTUZUMAB EMTANSINE [Suspect]
     Active Substance: ADO-TRASTUZUMAB EMTANSINE
     Dosage: 1071 MG, Q3W
     Route: 042
     Dates: start: 20150527, end: 20160630
  36. ADO-TRASTUZUMAB EMTANSINE [Suspect]
     Active Substance: ADO-TRASTUZUMAB EMTANSINE
     Dosage: 1 OT, QW (20 JUN 2017)
     Route: 042
     Dates: start: 20170830
  37. ADO-TRASTUZUMAB EMTANSINE [Suspect]
     Active Substance: ADO-TRASTUZUMAB EMTANSINE
     Dosage: DOSE 357
     Route: 042
     Dates: start: 20150527, end: 20160630
  38. ADO-TRASTUZUMAB EMTANSINE [Suspect]
     Active Substance: ADO-TRASTUZUMAB EMTANSINE
     Dosage: DOSE 462
     Dates: start: 20150506, end: 20150506
  39. ADO-TRASTUZUMAB EMTANSINE [Suspect]
     Active Substance: ADO-TRASTUZUMAB EMTANSINE
     Dosage: EVERY 3 WEEKS
     Route: 042
     Dates: start: 20170620, end: 20170830
  40. NAVELBINE [Suspect]
     Active Substance: VINORELBINE TARTRATE
     Indication: Breast cancer
     Dosage: 100 MG (FROM 01 SEP 2016)
     Route: 048
     Dates: start: 20160901, end: 20161030
  41. NITROFURANTOIN [Concomitant]
     Active Substance: NITROFURANTOIN
     Indication: Product used for unknown indication
     Route: 065
     Dates: start: 20170621, end: 20170623
  42. AROMASIN [Concomitant]
     Active Substance: EXEMESTANE
     Indication: Product used for unknown indication
  43. ARIMIDEX [Concomitant]
     Active Substance: ANASTROZOLE
     Indication: Product used for unknown indication
  44. IBUPROFEN [Concomitant]
     Active Substance: IBUPROFEN
     Indication: Headache
     Route: 048
     Dates: start: 20170201
  45. LOPERAMIDE [Concomitant]
     Active Substance: LOPERAMIDE
     Indication: Product used for unknown indication
     Dates: start: 20150514, end: 20150904
  46. CYCLIZINE [Concomitant]
     Active Substance: CYCLIZINE
     Indication: Prophylaxis
     Dosage: 150 MILLIGRAM, DAILY, 150 MG, QD (1/DAY)
     Route: 048
     Dates: start: 20150603, end: 20150715
  47. CYCLIZINE [Concomitant]
     Active Substance: CYCLIZINE
     Route: 048
     Dates: start: 20150603, end: 20150715
  48. CALCIUM CARBONATE\CHOLECALCIFEROL [Concomitant]
     Active Substance: CALCIUM CARBONATE\CHOLECALCIFEROL
     Indication: Product used for unknown indication
     Dosage: UNK, UNKNOWN
     Route: 048
     Dates: end: 20171027
  49. CALCIUM CARBONATE\CHOLECALCIFEROL [Concomitant]
     Active Substance: CALCIUM CARBONATE\CHOLECALCIFEROL
     Dosage: UNK, UNKNOWN
     Route: 048
     Dates: end: 20171027
  50. AMOXICILLIN [Concomitant]
     Active Substance: AMOXICILLIN
     Indication: Oropharyngeal pain
     Dosage: 3 DOSAGE FORM, DAILY, 3 DF, TID (3/DAY)
     Route: 048
     Dates: start: 20151104, end: 20151111
  51. BECLOMETHASONE DIPROPIONATE [Concomitant]
     Active Substance: BECLOMETHASONE DIPROPIONATE
     Indication: Wheezing
     Dosage: UNK, UNKNOWN
     Route: 050
     Dates: end: 20160108
  52. BECLOMETHASONE DIPROPIONATE [Concomitant]
     Active Substance: BECLOMETHASONE DIPROPIONATE
     Dosage: UNK, UNKNOWN
     Route: 050
     Dates: end: 20160108
  53. BISOPROLOL [Concomitant]
     Active Substance: BISOPROLOL
     Indication: Palpitations
     Dosage: UNK
     Route: 048
     Dates: start: 20160602, end: 20171027
  54. BISOPROLOL [Concomitant]
     Active Substance: BISOPROLOL
     Route: 065
     Dates: start: 20160602, end: 20171027
  55. CALCIUM GLUCONATE [Concomitant]
     Active Substance: CALCIUM GLUCONATE
     Indication: Product used for unknown indication
     Dosage: UNK, UNKNOWN ()
     Route: 065
     Dates: end: 20170201
  56. COCODAMOL [Concomitant]
     Active Substance: ACETAMINOPHEN\CODEINE PHOSPHATE
     Indication: Headache
     Dosage: UNK, UNKNOWN
     Route: 048
     Dates: start: 20160929, end: 20171027
  57. CODEINE [Concomitant]
     Active Substance: CODEINE
     Indication: Diarrhoea
     Dosage: UNK, UNKNOWN
     Route: 048
     Dates: start: 20150603, end: 20150715
  58. CODEINE [Concomitant]
     Active Substance: CODEINE
     Dosage: UNK, UNKNOWN ()
     Route: 048
     Dates: start: 2015
  59. CODEINE [Concomitant]
     Active Substance: CODEINE
     Dosage: 60 MG FOUR TIMES A DAY, AS NEEDED
     Route: 048
     Dates: start: 20150603, end: 20150715
  60. DEXAMETHASONE [Concomitant]
     Active Substance: DEXAMETHASONE
     Indication: Premedication
     Dosage: 2 MILLIGRAM, 1 DF, QD (1/DAY)
     Route: 048
     Dates: start: 201612, end: 20170510
  61. DEXAMETHASONE [Concomitant]
     Active Substance: DEXAMETHASONE
     Dosage: 2 MG, UNK
     Route: 048
     Dates: start: 201612, end: 20170510
  62. DEXAMETHASONE [Concomitant]
     Active Substance: DEXAMETHASONE
     Dosage: 1 DOSAGE FORM, DAILY, 1 DF, QD (1/DAY)
     Route: 048
     Dates: start: 20161004, end: 20161123
  63. DEXAMETHASONE [Concomitant]
     Active Substance: DEXAMETHASONE
     Dosage: UNK
     Route: 048
     Dates: start: 20170216, end: 20170830
  64. DEXAMETHASONE [Concomitant]
     Active Substance: DEXAMETHASONE
     Dosage: 2 MILLIGRAM, UNK
     Route: 048
     Dates: start: 20150504, end: 20150904
  65. DEXAMETHASONE [Concomitant]
     Active Substance: DEXAMETHASONE
     Dosage: 1 DF, QD (1/DAY)
     Route: 048
     Dates: start: 20160713, end: 201607
  66. DEXAMETHASONE [Concomitant]
     Active Substance: DEXAMETHASONE
     Dosage: 1 DOSAGE FORM, DAILY, 1 DF, QD (1/DAY)
     Route: 048
     Dates: start: 20150506, end: 20150717
  67. DEXAMETHASONE [Concomitant]
     Active Substance: DEXAMETHASONE
     Dosage: UNK
     Route: 048
     Dates: start: 201612, end: 201612
  68. DEXAMETHASONE [Concomitant]
     Active Substance: DEXAMETHASONE
     Dosage: UNK
     Route: 048
     Dates: start: 20161130, end: 20161201
  69. DEXAMETHASONE [Concomitant]
     Active Substance: DEXAMETHASONE
     Dosage: 1 DOSAGE FORM, DAILY, 1 DF, QD (1/DAY)
     Route: 048
     Dates: start: 20160713, end: 201607
  70. DEXAMETHASONE [Concomitant]
     Active Substance: DEXAMETHASONE
     Dosage: 1 DOSAGE FORM, DAILY, 1 DF, QD (1/DAY)
     Route: 048
     Dates: start: 20161123, end: 20161130
  71. DEXAMETHASONE [Concomitant]
     Active Substance: DEXAMETHASONE
     Dosage: 1 DOSAGE FORM, DAILY, 1 DF, QD (1/DAY)
     Route: 048
     Dates: start: 201607, end: 20160921
  72. DEXAMETHASONE [Concomitant]
     Active Substance: DEXAMETHASONE
     Dosage: 1 DF, QD
     Route: 048
     Dates: start: 201612, end: 201612
  73. DEXAMETHASONE [Concomitant]
     Active Substance: DEXAMETHASONE
     Dosage: 2 MG
     Route: 065
     Dates: start: 20160713, end: 20161004
  74. DEXAMETHASONE [Concomitant]
     Active Substance: DEXAMETHASONE
     Dosage: 1 DF, QD
     Route: 048
     Dates: start: 20161130, end: 20161201
  75. DEXAMETHASONE [Concomitant]
     Active Substance: DEXAMETHASONE
     Route: 065
     Dates: start: 20161014
  76. FLUCONAZOLE [Concomitant]
     Active Substance: FLUCONAZOLE
     Indication: Product used for unknown indication
     Dosage: UNK, UNKNOWN
     Route: 048
     Dates: start: 20171004, end: 20171004
  77. KEPPRA [Concomitant]
     Active Substance: LEVETIRACETAM
     Indication: Muscle twitching
     Route: 048
     Dates: start: 20160727, end: 20160810
  78. KEPPRA [Concomitant]
     Active Substance: LEVETIRACETAM
     Dosage: UNK UNK, BID (2/DAY)
     Route: 048
     Dates: start: 20160811, end: 20161027
  79. LANSOPRAZOLE [Concomitant]
     Active Substance: LANSOPRAZOLE
     Indication: Prophylaxis
     Dosage: UNK, UNKNOWN
     Route: 048
     Dates: start: 20150504, end: 20171027
  80. LEVETIRACETAM [Concomitant]
     Active Substance: LEVETIRACETAM
     Indication: Epilepsy
     Dosage: BID
     Route: 048
     Dates: start: 20160811, end: 20161027
  81. LEVETIRACETAM [Concomitant]
     Active Substance: LEVETIRACETAM
     Dosage: BID (2/DAY)
     Route: 048
     Dates: start: 20160727, end: 20160810
  82. LEVETIRACETAM [Concomitant]
     Active Substance: LEVETIRACETAM
     Dosage: 250 MG, UNK
     Route: 048
     Dates: start: 20160727, end: 20171027
  83. LOSARTAN [Concomitant]
     Active Substance: LOSARTAN
     Indication: Palpitations
     Dosage: 50 MG, UNK
     Route: 048
     Dates: start: 20160602, end: 20171027
  84. LOSARTAN [Concomitant]
     Active Substance: LOSARTAN
     Dosage: 50 MG, UNK
     Route: 048
     Dates: start: 20160602, end: 20170127
  85. METOCLOPRAMIDE [Concomitant]
     Active Substance: METOCLOPRAMIDE
     Indication: Product used for unknown indication
     Dosage: 2 DF, QD (1/DAY)
     Route: 048
     Dates: start: 20170815, end: 2017
  86. METOCLOPRAMIDE [Concomitant]
     Active Substance: METOCLOPRAMIDE
     Dosage: SUBSEQUENT DOSE RECEIVED ON 18/NOV/2016
     Route: 048
     Dates: start: 20150506, end: 2016
  87. METOCLOPRAMIDE [Concomitant]
     Active Substance: METOCLOPRAMIDE
     Dosage: UNK, UNKNOWN
     Route: 048
     Dates: start: 20170815, end: 2017
  88. METOCLOPRAMIDE [Concomitant]
     Active Substance: METOCLOPRAMIDE
     Route: 042
     Dates: start: 20150506, end: 20150903
  89. METOCLOPRAMIDE [Concomitant]
     Active Substance: METOCLOPRAMIDE
     Dosage: SUBSEQUENT DOSE RECEIVED ON 18/NOV/2016
     Route: 048
     Dates: start: 20170301, end: 2017
  90. ONDANSETRON [Concomitant]
     Active Substance: ONDANSETRON
     Indication: Product used for unknown indication
     Dosage: UNK
     Route: 048
     Dates: start: 20150508, end: 20150904
  91. ONDANSETRON [Concomitant]
     Active Substance: ONDANSETRON
     Dosage: UNK, UNKNOWN
     Route: 048
     Dates: start: 20161111, end: 2016
  92. ACETAMINOPHEN [Concomitant]
     Active Substance: ACETAMINOPHEN
     Indication: Headache
     Dosage: UNK, UNKNOWN
     Route: 048
     Dates: start: 20160629, end: 20171027
  93. PEGFILGRASTIM [Concomitant]
     Active Substance: PEGFILGRASTIM
     Indication: Product used for unknown indication
     Dosage: UNK, UNKNOWN
     Route: 058
     Dates: start: 20150506, end: 20150903
  94. QUININE SULFATE [Concomitant]
     Active Substance: QUININE SULFATE
     Indication: Muscle spasms
     Dosage: 200 MG, UNK
     Route: 048
     Dates: start: 20161123, end: 20171027
  95. RAMIPRIL [Concomitant]
     Active Substance: RAMIPRIL
     Indication: Palpitations
     Dosage: 5 MG, QD (1/DAY)
     Route: 048
     Dates: start: 20160308, end: 20161005
  96. RAMIPRIL [Concomitant]
     Active Substance: RAMIPRIL
     Indication: Cough
     Route: 065
  97. SENNA [Concomitant]
     Active Substance: SENNA LEAF\SENNOSIDES\SENNOSIDES A AND B
     Indication: Constipation
     Dosage: UNK, UNKNOWN
     Route: 048
     Dates: start: 20161221, end: 20170327
  98. SPIRONOLACTONE [Concomitant]
     Active Substance: SPIRONOLACTONE
     Indication: Palpitations
     Dosage: UNK, UNKNOWN
     Route: 048
     Dates: start: 20160602, end: 20171027
  99. TRIMETHOPRIM [Concomitant]
     Active Substance: TRIMETHOPRIM
     Indication: Urinary tract infection
     Dosage: UNK, UNKNOWN
     Route: 048
     Dates: start: 20170209, end: 20170216
  100. VENTOLIN [Concomitant]
     Active Substance: ALBUTEROL SULFATE
     Indication: Wheezing
     Dosage: UNK, UNKNOWN
     Route: 065
     Dates: start: 20170621, end: 2017
  101. APREPITANT [Concomitant]
     Active Substance: APREPITANT
     Indication: Prophylaxis
     Dosage: UNK UNK, UNKNOWN ()
     Route: 065
     Dates: start: 20150527, end: 20150905
  102. CASSIA [Concomitant]
     Indication: Constipation
     Dosage: UNK, UNKNOWN ()
     Route: 048
     Dates: start: 20161221, end: 20170327
  103. LACTULOSE [Concomitant]
     Active Substance: LACTULOSE
     Indication: Product used for unknown indication
     Dosage: UNK
     Route: 048
     Dates: start: 201603, end: 20171021
  104. LACTULOSE [Concomitant]
     Active Substance: LACTULOSE
     Dosage: UNK
     Route: 048
     Dates: start: 20161221, end: 20171021
  105. LACTULOSE [Concomitant]
     Active Substance: LACTULOSE
     Route: 048
     Dates: start: 201603, end: 20171021
  106. LACTULOSE [Concomitant]
     Active Substance: LACTULOSE
     Route: 048
     Dates: start: 20170201, end: 201703
  107. GELCLAIR [Concomitant]
     Indication: Product used for unknown indication
     Dosage: QD (1/DAY)
     Route: 048
     Dates: start: 20150514, end: 20150514
  108. AMITRIPTYLINE [Concomitant]
     Active Substance: AMITRIPTYLINE
     Indication: Product used for unknown indication
     Route: 048
     Dates: start: 201603
  109. CALAMINE [Concomitant]
     Active Substance: CALAMINE\FERRIC OXIDE RED\ZINC OXIDE
     Indication: Product used for unknown indication
     Dosage: 1 APPLICATION AS NEEDED
     Route: 061
     Dates: start: 20150915, end: 20151021
  110. CHLORHEXIDINE GLUCONATE [Concomitant]
     Active Substance: CHLORHEXIDINE GLUCONATE
     Indication: Product used for unknown indication
     Dosage: 1 MOUTH WASH AS NEEDED
     Route: 048
     Dates: start: 20150514, end: 20150715
  111. HYDROCORTISONE [Concomitant]
     Active Substance: HYDROCORTISONE
     Indication: Product used for unknown indication
     Dosage: LOTION APPLICATION
     Route: 061
     Dates: start: 20150725, end: 20150802
  112. CHLORPHENIRAMINE MALEATE [Concomitant]
     Active Substance: CHLORPHENIRAMINE MALEATE
     Indication: Product used for unknown indication
     Dosage: AS NEEDED
     Dates: start: 20150725, end: 20151021
  113. FLUCLOXACILLIN [Concomitant]
     Active Substance: FLUCLOXACILLIN
     Indication: Nail infection
     Route: 048
  114. FLUCLOXACILLIN [Concomitant]
     Active Substance: FLUCLOXACILLIN
     Route: 048
     Dates: start: 20150603, end: 20150610

REACTIONS (37)
  - Seizure [Unknown]
  - Vaginal discharge [Recovered/Resolved]
  - Muscle twitching [Unknown]
  - Chest pain [Recovered/Resolved]
  - Diarrhoea [Recovered/Resolved]
  - Headache [Recovered/Resolved]
  - Nausea [Recovered/Resolved]
  - Diarrhoea [Recovered/Resolved]
  - Constipation [Recovered/Resolved]
  - Dizziness [Unknown]
  - Hiccups [Recovered/Resolved]
  - Muscle spasms [Unknown]
  - Weight decreased [Unknown]
  - Urinary tract infection [Recovered/Resolved]
  - Headache [Recovered/Resolved]
  - Neuropathy peripheral [Not Recovered/Not Resolved]
  - Abdominal pain [Unknown]
  - Poor peripheral circulation [Unknown]
  - Left ventricular dysfunction [Not Recovered/Not Resolved]
  - Diarrhoea [Recovered/Resolved]
  - Nasopharyngitis [Recovered/Resolved]
  - Headache [Recovered/Resolved]
  - Nausea [Recovered/Resolved]
  - Fatigue [Not Recovered/Not Resolved]
  - Nausea [Recovered/Resolved]
  - Mucosal inflammation [Unknown]
  - Nail infection [Recovered/Resolved]
  - Lacrimation increased [Not Recovered/Not Resolved]
  - Rash [Recovered/Resolved]
  - Alopecia [Unknown]
  - Palpitations [Not Recovered/Not Resolved]
  - Neuralgia [Not Recovered/Not Resolved]
  - Depressed mood [Not Recovered/Not Resolved]
  - Cough [Recovered/Resolved]
  - Neuropathy peripheral [Not Recovered/Not Resolved]
  - Oropharyngeal pain [Recovered/Resolved]
  - Nail disorder [Recovered/Resolved]

NARRATIVE: CASE EVENT DATE: 20150406
